FAERS Safety Report 23621031 (Version 9)
Quarter: 2025Q1

REPORT INFORMATION
  Report Type: Report from Study
  Country: US (occurrence: US)
  Receive Date: 20240312
  Receipt Date: 20250207
  Transmission Date: 20250408
  Serious: Yes (Hospitalization)
  Sender: NOVARTIS
  Company Number: US-002147023-NVSC2024US052702

PATIENT
  Age: 67 Year
  Sex: Male

DRUGS (1)
  1. KESIMPTA [Suspect]
     Active Substance: OFATUMUMAB
     Indication: Multiple sclerosis
     Dosage: 20 MG, QW
     Route: 058
     Dates: start: 20240228

REACTIONS (7)
  - Dyskinesia [Unknown]
  - Fall [Unknown]
  - Head discomfort [Unknown]
  - Concussion [Unknown]
  - Headache [Unknown]
  - Anxiety [Unknown]
  - Hypersomnia [Unknown]

NARRATIVE: CASE EVENT DATE: 20240305
